FAERS Safety Report 8124075-1 (Version None)
Quarter: 2012Q1

REPORT INFORMATION
  Report Type: 
  Country: None (occurrence: None)
  Receive Date: 20120209
  Receipt Date: 20120207
  Transmission Date: 20120608
  Serious: Yes (Other)
  Sender: FDA-Public Use
  Company Number: US-PFIZER INC-2012033703

PATIENT
  Sex: Female
  Weight: 71.655 kg

DRUGS (4)
  1. CHANTIX [Suspect]
     Dosage: UNK
     Route: 048
     Dates: start: 20061101, end: 20070201
  2. LIPITOR [Concomitant]
     Dosage: UNK
  3. CHANTIX [Suspect]
     Indication: SMOKING CESSATION THERAPY
     Dosage: 0.5 MG, 1X/DAY
     Route: 048
     Dates: start: 20061101, end: 20061101
  4. AMLODIPINE/VALSARTAN [Concomitant]
     Dosage: 10/160 MG,

REACTIONS (4)
  - MOOD ALTERED [None]
  - ABNORMAL DREAMS [None]
  - ABNORMAL BEHAVIOUR [None]
  - AGGRESSION [None]
